FAERS Safety Report 25468198 (Version 1)
Quarter: 2025Q2

REPORT INFORMATION
  Report Type: Spontaneous
  Country: US (occurrence: US)
  Receive Date: 20250623
  Receipt Date: 20250623
  Transmission Date: 20250717
  Serious: No
  Sender: MERCK SHARP & DOHME LLC
  Company Number: US-009507513-2298510

PATIENT
  Age: 32 Year
  Sex: Female

DRUGS (6)
  1. SOTATERCEPT [Suspect]
     Active Substance: SOTATERCEPT
     Indication: Pulmonary arterial hypertension
     Dates: start: 202406
  2. SOTATERCEPT [Suspect]
     Active Substance: SOTATERCEPT
  3. SOTATERCEPT [Suspect]
     Active Substance: SOTATERCEPT
  4. SOTATERCEPT [Suspect]
     Active Substance: SOTATERCEPT
  5. MACITENTAN [Concomitant]
     Active Substance: MACITENTAN
  6. TADALAFIL [Concomitant]
     Active Substance: TADALAFIL

REACTIONS (3)
  - Oxygen saturation decreased [Unknown]
  - Walking distance test abnormal [Unknown]
  - N-terminal prohormone brain natriuretic peptide decreased [Unknown]

NARRATIVE: CASE EVENT DATE: 20240901
